FAERS Safety Report 4471835-4 (Version None)
Quarter: 2004Q4

REPORT INFORMATION
  Report Type: 
  Country: None (occurrence: None)
  Receive Date: 20041007
  Receipt Date: 20040928
  Transmission Date: 20050328
  Serious: Yes (Hospitalization)
  Sender: FDA-Public Use
  Company Number: 2004236464GB

PATIENT
  Age: 72 Year
  Sex: Male
  Weight: 70 kg

DRUGS (3)
  1. SULFASALAZINE [Suspect]
     Indication: RHEUMATOID ARTHRITIS
     Dosage: 1500 MG, QD, ORAL
     Route: 048
     Dates: start: 20040728, end: 20040903
  2. VOLTAREN [Concomitant]
  3. PARACETAMOL [Concomitant]

REACTIONS (7)
  - ATAXIA [None]
  - CONDITION AGGRAVATED [None]
  - HEADACHE [None]
  - MALAISE [None]
  - MYALGIA [None]
  - NAUSEA [None]
  - RADICULOPATHY [None]
